FAERS Safety Report 10926170 (Version 1)
Quarter: 2015Q1

REPORT INFORMATION
  Report Type: Spontaneous
  Country: US (occurrence: None)
  Receive Date: 20150316
  Receipt Date: 20150316
  Transmission Date: 20150721
  Serious: No
  Sender: FDA-Public Use
  Company Number: None

PATIENT
  Age: 28 Year
  Sex: Male
  Weight: 99.79 kg

DRUGS (5)
  1. TRAZONE HCL 100 MG TAB [Concomitant]
     Active Substance: TRAZODONE HYDROCHLORIDE
  2. CEFDINIR. [Concomitant]
     Active Substance: CEFDINIR
  3. PREDNISONE 20 MG WALGREENS/MFG WATSON [Suspect]
     Active Substance: PREDNISONE
     Indication: DYSPNOEA
     Dosage: 2 PILLS
     Route: 048
     Dates: start: 20150312, end: 20150313
  4. CELEXA [Concomitant]
     Active Substance: CITALOPRAM HYDROBROMIDE
  5. PREDNISONE. [Concomitant]
     Active Substance: PREDNISONE

REACTIONS (1)
  - Pain in extremity [None]

NARRATIVE: CASE EVENT DATE: 20150313
